FAERS Safety Report 9702046 (Version 1)
Quarter: 2013Q4

REPORT INFORMATION
  Report Type: Report from Study
  Country: US (occurrence: US)
  Receive Date: 20131121
  Receipt Date: 20131121
  Transmission Date: 20140711
  Serious: Yes (Other)
  Sender: FDA-Public Use
  Company Number: US-ROCHE-1305702

PATIENT
  Age: 70 Year
  Sex: Male
  Weight: 88.53 kg

DRUGS (34)
  1. RITUXAN [Suspect]
     Indication: COLON CANCER
     Dosage: MOST RECENT DOSE 01-FEB-2013
     Route: 041
     Dates: start: 20120411, end: 20120502
  2. RITUXAN [Suspect]
     Indication: IMMUNE THROMBOCYTOPENIC PURPURA
     Route: 065
     Dates: start: 20130110
  3. RITUXAN [Suspect]
     Indication: NEUTROPENIA
  4. AVASTIN [Suspect]
     Indication: NEUTROPENIA
     Dosage: MOST RECENT DOSE 04-MAY-2013
     Route: 065
     Dates: start: 200612
  5. AVASTIN [Suspect]
     Indication: IMMUNE THROMBOCYTOPENIC PURPURA
     Route: 065
     Dates: start: 20080827, end: 20090130
  6. AVASTIN [Suspect]
     Indication: COLON CANCER
     Route: 065
     Dates: start: 20100510, end: 201011
  7. AVASTIN [Suspect]
     Indication: COLON CANCER
     Route: 065
     Dates: start: 20110510, end: 20120904
  8. AVASTIN [Suspect]
     Route: 065
     Dates: start: 20121030
  9. AVASTIN [Suspect]
     Route: 065
     Dates: start: 20060524
  10. AMLODIPINE BESYLATE [Concomitant]
     Route: 048
  11. FUROSEMIDE [Concomitant]
     Route: 048
  12. LISINOPRIL [Concomitant]
     Route: 048
  13. METOPROLOL SUCCINATE [Concomitant]
     Route: 048
  14. OXYCODONE [Concomitant]
     Indication: PAIN
     Dosage: TAKE 1 BY MOUTH 3 TO 4 HOURS AS NEEDED FOR PAIN
     Route: 048
  15. FINASTERIDE [Concomitant]
     Route: 048
  16. OMEPRAZOLE [Concomitant]
     Route: 048
  17. TERAZOSIN HCL [Concomitant]
     Route: 048
  18. LORATADINE [Concomitant]
     Route: 048
  19. VITAMIN B6 [Concomitant]
     Route: 048
  20. FLUOROURACIL [Concomitant]
     Route: 065
     Dates: start: 20060606
  21. FLUOROURACIL [Concomitant]
     Route: 065
     Dates: start: 200612
  22. FLUOROURACIL [Concomitant]
     Route: 065
     Dates: start: 20100510
  23. FLUOROURACIL [Concomitant]
     Route: 065
     Dates: start: 20110802, end: 20120904
  24. FLUOROURACIL [Concomitant]
     Route: 065
     Dates: start: 20121030
  25. FLUOROURACIL [Concomitant]
     Dosage: LAST TREATED ON 30 JAN 2009
     Route: 065
     Dates: start: 20080827
  26. LEUCOVORIN [Concomitant]
     Route: 065
     Dates: start: 20121030
  27. DEXAMETHASONE SODIUM PHOSPHATE [Concomitant]
     Route: 042
     Dates: start: 20121227
  28. GRANISETRON HYDROCHLORIDE [Concomitant]
     Route: 042
     Dates: start: 20121227
  29. DIPHENHYDRAMINE HCL [Concomitant]
     Route: 042
     Dates: start: 20130110
  30. FAMOTIDINE [Concomitant]
     Route: 042
     Dates: start: 20130110
  31. SODIUM CHLORIDE [Concomitant]
     Route: 065
  32. IRINOTECAN [Concomitant]
     Route: 065
     Dates: start: 20080827
  33. ALLOPURINOL [Concomitant]
     Route: 048
  34. CALCITRIOL [Concomitant]
     Route: 048

REACTIONS (18)
  - Adenocarcinoma [Unknown]
  - Hydronephrosis [Unknown]
  - Obstructive uropathy [Not Recovered/Not Resolved]
  - Blood iron decreased [Unknown]
  - Weight decreased [Unknown]
  - Erythropoiesis abnormal [Unknown]
  - Thrombocytopenia [Unknown]
  - Splenomegaly [Unknown]
  - Renal failure [Not Recovered/Not Resolved]
  - Leukopenia [Not Recovered/Not Resolved]
  - Nausea [Not Recovered/Not Resolved]
  - Vomiting [Not Recovered/Not Resolved]
  - Dehydration [Not Recovered/Not Resolved]
  - Thyroid disorder [Not Recovered/Not Resolved]
  - Salivary hypersecretion [Unknown]
  - Immune thrombocytopenic purpura [Unknown]
  - Neutropenia [Not Recovered/Not Resolved]
  - Protein urine present [Unknown]
